FAERS Safety Report 7300517-6 (Version None)
Quarter: 2011Q1

REPORT INFORMATION
  Report Type: 
  Country: None (occurrence: None)
  Receive Date: 20110217
  Receipt Date: 20110207
  Transmission Date: 20110831
  Serious: Yes (Hospitalization)
  Sender: FDA-Public Use
  Company Number: PHHO2010US18074

PATIENT
  Sex: Male
  Weight: 80.7 kg

DRUGS (8)
  1. OXALIPLATIN [Concomitant]
     Indication: COLORECTAL CANCER
     Dosage: UNK
     Dates: start: 20101119
  2. COMPAZINE [Concomitant]
     Dosage: 10 MG, UNK
  3. AFINITOR [Suspect]
     Indication: COLORECTAL CANCER
     Dosage: 5 MG, UNK
     Route: 048
     Dates: start: 20101119, end: 20101122
  4. FLUOROURACIL [Suspect]
     Indication: COLORECTAL CANCER
     Dosage: 4800 OVER 46 HRS Q2 WK
     Dates: start: 20101119, end: 20101121
  5. LIDOCAINE [Concomitant]
     Dosage: 2.54 UNK, UNK
  6. AVASTIN [Suspect]
     Indication: COLORECTAL CANCER
     Dosage: UNK
     Dates: start: 20101119, end: 20101122
  7. LORAZEPAM [Concomitant]
     Dosage: 1 MG, UNK
  8. ZOFRAN [Concomitant]
     Dosage: 6 MG, UNK
     Route: 048

REACTIONS (13)
  - MITRAL VALVE INCOMPETENCE [None]
  - COLLATERAL CIRCULATION [None]
  - ACUTE CORONARY SYNDROME [None]
  - VENTRICULAR HYPOKINESIA [None]
  - CORONARY ARTERY OCCLUSION [None]
  - CHEST PAIN [None]
  - TACHYCARDIA [None]
  - CARDIOMYOPATHY [None]
  - ACUTE MYOCARDIAL INFARCTION [None]
  - VASOCONSTRICTION [None]
  - LEFT VENTRICULAR HYPERTROPHY [None]
  - LEFT VENTRICULAR DYSFUNCTION [None]
  - ARTERIOSPASM CORONARY [None]
